FAERS Safety Report 9461557 (Version 2)
Quarter: 2013Q3

REPORT INFORMATION
  Report Type: Spontaneous
  Country: JP (occurrence: JP)
  Receive Date: 20130816
  Receipt Date: 20130829
  Transmission Date: 20140515
  Serious: Yes (Other)
  Sender: FDA-Public Use
  Company Number: JP-PFIZER INC-2013236744

PATIENT
  Age: 75 Year
  Sex: Male

DRUGS (17)
  1. CELECOX [Suspect]
     Indication: BACK PAIN
     Dosage: 100 MG, 2X/DAY
     Route: 048
     Dates: start: 20130522
  2. CELECOX [Suspect]
     Indication: BACK PAIN
     Dosage: 100 MG, 2X/DAY
     Route: 048
     Dates: start: 20130614
  3. CELECOX [Suspect]
     Indication: MONOPLEGIA
     Dosage: 200 MG, 2X/DAY
     Route: 048
     Dates: start: 20130712, end: 20130713
  4. PREDONINE [Concomitant]
     Dosage: UNK
  5. LASIX [Concomitant]
     Dosage: UNK
  6. BAYASPIRIN [Concomitant]
     Dosage: UNK
  7. TAKEPRON [Concomitant]
     Dosage: UNK
  8. CARDENALIN [Concomitant]
     Dosage: UNK
  9. MICARDIS [Concomitant]
     Dosage: UNK
  10. TAURINE [Concomitant]
     Dosage: UNK
  11. MAGNESIUM OXIDE [Concomitant]
     Dosage: UNK
     Route: 048
  12. URSO [Concomitant]
     Dosage: UNK
     Route: 048
  13. DEPAS [Concomitant]
     Dosage: UNK
     Route: 048
  14. HYALEIN [Concomitant]
     Dosage: UNK
  15. MYSLEE [Concomitant]
     Dosage: UNK
  16. FELDENE [Concomitant]
     Dosage: UNK
  17. VOLTAREN [Concomitant]
     Dosage: UNK

REACTIONS (2)
  - Prurigo [Recovered/Resolved]
  - Prescribed overdose [Unknown]
